FAERS Safety Report 5553999-4 (Version None)
Quarter: 2007Q4

REPORT INFORMATION
  Report Type: 
  Country: None (occurrence: None)
  Receive Date: 20071213
  Receipt Date: 20071203
  Transmission Date: 20080405
  Serious: Yes (Other)
  Sender: FDA-Public Use
  Company Number: FR-JNJFOC-20071200536

PATIENT
  Age: 85 Year
  Sex: Female

DRUGS (4)
  1. REMINYL LP [Suspect]
     Route: 048
  2. REMINYL LP [Suspect]
     Route: 048
  3. REMINYL LP [Suspect]
     Route: 048
  4. REMINYL LP [Suspect]
     Indication: DEMENTIA
     Route: 048

REACTIONS (1)
  - ASTHMA [None]
